FAERS Safety Report 8879150 (Version 1)
Quarter: 2012Q4

REPORT INFORMATION
  Report Type: Spontaneous
  Country: US (occurrence: None)
  Receive Date: 20121031
  Receipt Date: 20121031
  Transmission Date: 20130627
  Serious: Yes (Life-Threatening)
  Sender: FDA-Public Use
  Company Number: None

PATIENT
  Age: 68 Year
  Sex: Male
  Weight: 78.6 kg

DRUGS (5)
  1. BORTEZOMIB [Suspect]
     Dosage: see description of event
  2. CARMUSTINE [Suspect]
  3. ETOPOSIDE [Suspect]
  4. CYTARABINE [Suspect]
  5. MELPHALAN [Suspect]

REACTIONS (4)
  - Respiratory failure [None]
  - Neutropenic colitis [None]
  - Renal failure [None]
  - Haemodialysis [None]
